FAERS Safety Report 8716204 (Version 2)
Quarter: 2013Q4

REPORT INFORMATION
  Report Type: Spontaneous
  Country: GB (occurrence: GB)
  Receive Date: 20120809
  Receipt Date: 20131031
  Transmission Date: 20140711
  Serious: Yes (Other)
  Sender: FDA-Public Use
  Company Number: GB-009507513-2012SP033362

PATIENT
  Age: 19 Year
  Sex: Female

DRUGS (1)
  1. IMPLANON [Suspect]
     Dosage: UNK UNK, UNKNOWN
     Dates: start: 201009

REACTIONS (2)
  - Pregnancy with implant contraceptive [Unknown]
  - Device dislocation [Unknown]
